FAERS Safety Report 8336578 (Version 3)
Quarter: 2013Q4

REPORT INFORMATION
  Report Type: Report from Study
  Country: US (occurrence: US)
  Receive Date: 20120113
  Receipt Date: 20131016
  Transmission Date: 20140711
  Serious: Yes (Death, Hospitalization)
  Sender: FDA-Public Use
  Company Number: US-CELGENEUS-163-CCAZA-12010919

PATIENT
  Age: 74 Year
  Sex: Male
  Weight: 92 kg

DRUGS (2)
  1. AZACITIDINE INJECTABLE [Suspect]
     Indication: ACUTE MYELOID LEUKAEMIA
     Dosage: 160 MILLIGRAM
     Route: 058
     Dates: start: 20111115, end: 20111121
  2. MYLOTARG [Suspect]
     Indication: ACUTE MYELOID LEUKAEMIA
     Dosage: 3 MILLIGRAM/SQ. METER
     Route: 041
     Dates: start: 20111122, end: 20111122

REACTIONS (4)
  - Multi-organ failure [Fatal]
  - Febrile neutropenia [Unknown]
  - Sepsis [Unknown]
  - Atrial fibrillation [Unknown]
